FAERS Safety Report 5025997-0 (Version None)
Quarter: 2006Q2

REPORT INFORMATION
  Report Type: 
  Country: None (occurrence: None)
  Receive Date: 20060614
  Receipt Date: 20060529
  Transmission Date: 20061013
  Serious: Yes (Other)
  Sender: FDA-Public Use
  Company Number: PHBS2006JP08192

PATIENT
  Age: 72 Year
  Sex: Male

DRUGS (3)
  1. VOLTAREN [Suspect]
     Indication: ANTIPYRESIS
     Dosage: 2 DF/ DAY
     Route: 054
  2. INTERFERON [Concomitant]
     Dosage: 2 MIU, TID
     Dates: start: 20060515, end: 20060522
  3. VOLTAREN [Suspect]
     Dosage: 25 MG/DAY
     Route: 048
     Dates: start: 20060521, end: 20060522

REACTIONS (4)
  - BLOOD CREATINE PHOSPHOKINASE INCREASED [None]
  - BLOOD CREATININE INCREASED [None]
  - BLOOD UREA INCREASED [None]
  - RENAL IMPAIRMENT [None]
